FAERS Safety Report 24058091 (Version 1)
Quarter: 2024Q3

REPORT INFORMATION
  Report Type: Other
  Country: CH (occurrence: CH)
  Receive Date: 20240707
  Receipt Date: 20240707
  Transmission Date: 20241017
  Serious: Yes (Other)
  Sender: B BRAUN
  Company Number: CH-B.Braun Medical Inc.-2158896

PATIENT
  Age: 41 Year
  Sex: Male

DRUGS (4)
  1. ACETAMINOPHEN [Suspect]
     Active Substance: ACETAMINOPHEN
     Indication: Pyrexia
  2. ACETAMINOPHEN [Suspect]
     Active Substance: ACETAMINOPHEN
     Indication: Cough
  3. AZITHROMYCIN [Suspect]
     Active Substance: AZITHROMYCIN
  4. IBUPROFEN [Suspect]
     Active Substance: IBUPROFEN

REACTIONS (1)
  - Erythema multiforme [Recovering/Resolving]
